FAERS Safety Report 8474118-0 (Version None)
Quarter: 2012Q2

REPORT INFORMATION
  Report Type: 
  Country: None (occurrence: None)
  Receive Date: 20120628
  Receipt Date: 20120625
  Transmission Date: 20120825
  Serious: Yes (Other)
  Sender: FDA-Public Use
  Company Number: US-PFIZER INC-2012038347

PATIENT
  Sex: Female
  Weight: 79.8 kg

DRUGS (2)
  1. NORGESTREL AND ETHINYL ESTRADIOL [Suspect]
     Indication: CONTRACEPTION
     Dosage: 0.3-0.03 MG
  2. NORGESTREL AND ETHINYL ESTRADIOL [Suspect]
     Dosage: UNK, 1X/DAILY
     Dates: start: 20110622, end: 20110814

REACTIONS (3)
  - DRUG INEFFECTIVE [None]
  - UNINTENDED PREGNANCY [None]
  - PRODUCT QUALITY ISSUE [None]
